FAERS Safety Report 4788868-0 (Version None)
Quarter: 2005Q3

REPORT INFORMATION
  Report Type: 
  Country: None (occurrence: None)
  Receive Date: 20050929
  Receipt Date: 20050816
  Transmission Date: 20060218
  Serious: Yes (Other)
  Sender: FDA-Public Use
  Company Number: HQWYE470310JAN05

PATIENT
  Age: 34 Year

DRUGS (3)
  1. BENEFIX [Suspect]
     Indication: FACTOR IX DEFICIENCY
     Dosage: ONE DOSE, 250 IE
  2. NORVIR [Concomitant]
  3. COMBIVIR [Concomitant]

REACTIONS (1)
  - HAEMORRHAGE INTRACRANIAL [None]
